FAERS Safety Report 16529219 (Version 1)
Quarter: 2019Q3

REPORT INFORMATION
  Report Type: Spontaneous
  Country: AU (occurrence: AU)
  Receive Date: 20190704
  Receipt Date: 20190704
  Transmission Date: 20191004
  Serious: Yes (Other)
  Sender: FDA-Public Use
  Company Number: AU-ASTRAZENECA-2019SE93552

PATIENT

DRUGS (1)
  1. LYNPARZA [Suspect]
     Active Substance: OLAPARIB
     Route: 048

REACTIONS (1)
  - Obliterative bronchiolitis [Unknown]
